FAERS Safety Report 15836312 (Version 1)
Quarter: 2019Q1

REPORT INFORMATION
  Report Type: Spontaneous
  Country: US (occurrence: US)
  Receive Date: 20190116
  Receipt Date: 20190116
  Transmission Date: 20190417
  Serious: No
  Sender: FDA-Public Use
  Company Number: None

PATIENT
  Age: 25 Year
  Sex: Male
  Weight: 101.25 kg

DRUGS (1)
  1. OLD SPICE HIGH ENDURANCE PURE SPORT [Suspect]
     Active Substance: ALUMINUM CHLOROHYDRATE\ALUMINUM ZIRCONIUM TRICHLOROHYDREX GLY
     Indication: PERSONAL HYGIENE
     Dates: start: 20190114, end: 20190116

REACTIONS (1)
  - Application site dermatitis [None]

NARRATIVE: CASE EVENT DATE: 20190114
